FAERS Safety Report 5232619-2 (Version None)
Quarter: 2007Q1

REPORT INFORMATION
  Report Type: 
  Country: None (occurrence: None)
  Receive Date: 20070206
  Receipt Date: 20070206
  Transmission Date: 20070707
  Serious: Yes (Hospitalization)
  Sender: FDA-Public Use
  Company Number: None

PATIENT
  Age: 60 Year
  Sex: Male
  Weight: 152 kg

DRUGS (14)
  1. WARFARIN SODIUM [Suspect]
     Indication: ATRIAL FIBRILLATION
     Dosage: 5 MG DAILY PO
     Route: 048
     Dates: start: 20061030, end: 20061102
  2. ALLOPURINOL SODIUM [Concomitant]
  3. ASPIRIN [Concomitant]
  4. DIGOXIN [Concomitant]
  5. DILTIAZEM HCL [Concomitant]
  6. GLYBURIDE [Concomitant]
  7. HUMULIN 70/30 [Concomitant]
  8. SYNTHROID [Concomitant]
  9. LISINOPRIL [Concomitant]
  10. METOPROLOL SUCCINATE EXTENDED RELEASE [Concomitant]
  11. POTASSIUM ACETATE [Concomitant]
  12. RANITIDINE [Concomitant]
  13. SIMVASTATIN [Concomitant]
  14. TERAZOSIN HCL [Concomitant]

REACTIONS (3)
  - DRUG INTERACTION [None]
  - INTERNATIONAL NORMALISED RATIO INCREASED [None]
  - UPPER GASTROINTESTINAL HAEMORRHAGE [None]
